FAERS Safety Report 8436080-6 (Version None)
Quarter: 2012Q2

REPORT INFORMATION
  Report Type: 
  Country: None (occurrence: None)
  Receive Date: 20120614
  Receipt Date: 20120531
  Transmission Date: 20120825
  Serious: Yes (Other)
  Sender: FDA-Public Use
  Company Number: AU-ROCHE-1076917

PATIENT
  Age: 40 Year
  Sex: Male

DRUGS (2)
  1. BEVACIZUMAB [Suspect]
     Indication: MACULAR OEDEMA
     Route: 050
  2. BEVACIZUMAB [Suspect]
     Indication: RETINAL VEIN OCCLUSION

REACTIONS (1)
  - ERECTILE DYSFUNCTION [None]
